FAERS Safety Report 10592442 (Version 3)
Quarter: 2016Q1

REPORT INFORMATION
  Report Type: Spontaneous
  Country: US (occurrence: US)
  Receive Date: 20141119
  Receipt Date: 20160203
  Transmission Date: 20160525
  Serious: Yes (Hospitalization, Other)
  Sender: FDA-Public Use
  Company Number: US-JNJFOC-20141107701

PATIENT
  Age: 34 Year
  Sex: Female
  Weight: 94.35 kg

DRUGS (6)
  1. IBUPROFEN. [Suspect]
     Active Substance: IBUPROFEN
     Indication: PAIN
     Dosage: 10 TO 12 IBUPROFEN PER DAY FOR ABOUT A WEEK
     Route: 065
  2. TYLENOL EXTRA STRENGTH [Suspect]
     Active Substance: ACETAMINOPHEN
     Indication: ABDOMINAL PAIN
     Dosage: DOSAGE:1-2 DOSES 4-5 TIMES A DAY (APPROXIMATELY 4,000MG/DAY)
     Route: 048
     Dates: start: 20121208, end: 20121214
  3. IBUPROFEN. [Suspect]
     Active Substance: IBUPROFEN
     Route: 065
  4. TYLENOL EXTRA STRENGTH [Suspect]
     Active Substance: ACETAMINOPHEN
     Indication: BACK PAIN
     Dosage: DOSAGE:1-2 DOSES 4-5 TIMES A DAY (APPROXIMATELY 4,000MG/DAY)
     Route: 048
     Dates: start: 20121208, end: 20121214
  5. NORCO [Concomitant]
     Active Substance: ACETAMINOPHEN\HYDROCODONE BITARTRATE
     Indication: PELVIC PAIN
     Route: 065
     Dates: start: 201112
  6. KLONOPIN [Concomitant]
     Active Substance: CLONAZEPAM
     Indication: PRODUCT USED FOR UNKNOWN INDICATION
     Dosage: APPROXIMATELY 2 PER WEEK
     Route: 048

REACTIONS (2)
  - Acute hepatic failure [Unknown]
  - Overdose [Unknown]

NARRATIVE: CASE EVENT DATE: 201212
